FAERS Safety Report 15822348 (Version 1)
Quarter: 2018Q4

REPORT INFORMATION
  Report Type: Spontaneous
  Country: US (occurrence: US)
  Receive Date: 20181217
  Receipt Date: 20181217
  Transmission Date: 20190205
  Serious: Yes (Hospitalization)
  Sender: FDA-Public Use
  Company Number: None

PATIENT
  Sex: Female

DRUGS (10)
  1. SMZ-TMP [Concomitant]
     Active Substance: SULFAMETHOXAZOLE\TRIMETHOPRIM
  2. AZATHIOPRINE. [Concomitant]
     Active Substance: AZATHIOPRINE
  3. PREDNISONE. [Concomitant]
     Active Substance: PREDNISONE
  4. NORTIPTYLINE [Concomitant]
     Active Substance: NORTRIPTYLINE
  5. XELJANZ XR [Suspect]
     Active Substance: TOFACITINIB CITRATE
     Indication: RHEUMATOID ARTHRITIS
     Dosage: ?          OTHER DOSE:1 TABLET;?
     Route: 048
     Dates: start: 20180928
  6. ZOLPIDEM [Concomitant]
     Active Substance: ZOLPIDEM\ZOLPIDEM TARTRATE
  7. ACYCLOVIR. [Concomitant]
     Active Substance: ACYCLOVIR
  8. FLECAINIDE [Concomitant]
     Active Substance: FLECAINIDE
  9. METOPROLOL. [Concomitant]
     Active Substance: METOPROLOL
  10. GABAPENTIN. [Concomitant]
     Active Substance: GABAPENTIN

REACTIONS (1)
  - Acute myeloid leukaemia [None]
